FAERS Safety Report 7893431-9 (Version None)
Quarter: 2011Q4

REPORT INFORMATION
  Report Type: 
  Country: None (occurrence: None)
  Receive Date: 20111104
  Receipt Date: 20111103
  Transmission Date: 20120403
  Serious: Yes (Death, Disabling)
  Sender: FDA-Public Use
  Company Number: NZ-B.I. PHARMACEUTICALS,INC./RIDGEFIELD-2011-AU-00776AU

PATIENT
  Sex: Female
  Weight: 57 kg

DRUGS (7)
  1. SPIRONOLACTONE [Concomitant]
     Dosage: 12.5 MG
     Dates: start: 20110317
  2. CILAZAPRIL [Concomitant]
     Dosage: 0.5 MG
  3. ALENTRONADE 70 WITH VIT D [Concomitant]
     Dates: start: 20110706
  4. PARACODE [Concomitant]
  5. PRADAXA [Suspect]
     Indication: ATRIAL FIBRILLATION
     Dosage: 220 MG
     Dates: start: 20110704, end: 20110717
  6. FUROSEMIDE [Concomitant]
     Dosage: 80 MG
     Dates: start: 19960919
  7. ACETAMINOPHEN [Concomitant]

REACTIONS (4)
  - HIP FRACTURE [None]
  - FALL [None]
  - BLEEDING TIME PROLONGED [None]
  - DEATH [None]
